FAERS Safety Report 6240331-6 (Version None)
Quarter: 2009Q2

REPORT INFORMATION
  Report Type: 
  Country: None (occurrence: None)
  Receive Date: 20090623
  Receipt Date: 20080717
  Transmission Date: 20091009
  Serious: No
  Sender: FDA-Public Use
  Company Number: US-ASTRAZENECA-2008UW14946

PATIENT
  Sex: Male
  Weight: 63.5 kg

DRUGS (3)
  1. PULMICORT RESPULES [Suspect]
     Indication: EMPHYSEMA
     Route: 055
  2. PULMICORT RESPULES [Suspect]
     Indication: CHRONIC OBSTRUCTIVE PULMONARY DISEASE
     Route: 055
  3. IPATROPIUM/ALBUTEROL [Concomitant]

REACTIONS (3)
  - BRONCHITIS [None]
  - DYSPNOEA [None]
  - INCREASED UPPER AIRWAY SECRETION [None]
